FAERS Safety Report 23550454 (Version 1)
Quarter: 2024Q1

REPORT INFORMATION
  Report Type: Spontaneous
  Country: US (occurrence: None)
  Receive Date: 20240220
  Receipt Date: 20240220
  Transmission Date: 20240409
  Serious: No
  Sender: FDA-Public Use
  Company Number: None

PATIENT
  Age: 48 Year
  Sex: Male

DRUGS (1)
  1. BRIXADI [Suspect]
     Active Substance: BUPRENORPHINE

REACTIONS (3)
  - Therapy interrupted [None]
  - Injection site mass [None]
  - Injection site reaction [None]

NARRATIVE: CASE EVENT DATE: 20240218
